FAERS Safety Report 7022748-5 (Version None)
Quarter: 2010Q3

REPORT INFORMATION
  Report Type: 
  Country: None (occurrence: None)
  Receive Date: 20100930
  Receipt Date: 20100927
  Transmission Date: 20110219
  Serious: Yes (Hospitalization)
  Sender: FDA-Public Use
  Company Number: A0883534A

PATIENT
  Age: 56 Year
  Sex: Female

DRUGS (8)
  1. WELLBUTRIN SR [Suspect]
     Indication: DEPRESSION
     Dosage: 200MG PER DAY
     Route: 048
     Dates: start: 20060101, end: 20100924
  2. ZOCOR [Concomitant]
  3. PERCOCET [Concomitant]
     Dosage: 7.5MG FOUR TIMES PER DAY
  4. KLONOPIN [Concomitant]
  5. SOMA [Concomitant]
     Dosage: 350MG THREE TIMES PER DAY
  6. MAGNESIUM OXIDE [Concomitant]
  7. METOPROLOL TARTRATE [Concomitant]
  8. CALCIUM [Concomitant]

REACTIONS (7)
  - ATRIAL FIBRILLATION [None]
  - BLOOD PRESSURE INCREASED [None]
  - CARDIAC PACEMAKER INSERTION [None]
  - DYSPNOEA [None]
  - INSOMNIA [None]
  - MITRAL VALVE PROLAPSE [None]
  - TRAUMATIC LUNG INJURY [None]
